FAERS Safety Report 6277331-6 (Version None)
Quarter: 2009Q3

REPORT INFORMATION
  Report Type: 
  Country: None (occurrence: None)
  Receive Date: 20090722
  Receipt Date: 20090410
  Transmission Date: 20100115
  Serious: Yes (Hospitalization, Other)
  Sender: FDA-Public Use
  Company Number: US-BRISTOL-MYERS SQUIBB COMPANY-14582530

PATIENT
  Age: 59 Year
  Sex: Male
  Weight: 77 kg

DRUGS (6)
  1. COUMADIN [Suspect]
  2. VELCADE [Suspect]
     Indication: MULTIPLE MYELOMA
     Dosage: TWICE A WK FOR 2 WK;THEN ONE WK OFF PER CYCLE, DRUG INTERRUPTED ON 13MAR09.
     Route: 065
     Dates: end: 20090313
  3. DEXAMETHASONE [Suspect]
     Indication: MULTIPLE MYELOMA
     Route: 065
  4. LISINOPRIL [Concomitant]
  5. TOPROL-XL [Concomitant]
  6. AMLODIPINE [Concomitant]

REACTIONS (1)
  - INTRA-ABDOMINAL HAEMORRHAGE [None]
